FAERS Safety Report 6498357-3 (Version None)
Quarter: 2009Q4

REPORT INFORMATION
  Report Type: 
  Country: None (occurrence: None)
  Receive Date: 20091127
  Receipt Date: 20090427
  Transmission Date: 20100525
  Serious: No
  Sender: FDA-Public Use
  Company Number: 285653

PATIENT
  Age: 11 Year
  Sex: Male

DRUGS (2)
  1. NOVOLOG [Suspect]
     Indication: TYPE 1 DIABETES MELLITUS
     Dosage: UP TO 75 IU VIA PUMP DAILY, SUBCUTAN.-PUMP
     Route: 058
     Dates: start: 20050101
  2. VITAMINS NOS (VITAMINS NOS) [Concomitant]

REACTIONS (1)
  - BLOOD GLUCOSE INCREASED [None]
